FAERS Safety Report 5131346-X (Version None)
Quarter: 2006Q4

REPORT INFORMATION
  Report Type: 
  Country: None (occurrence: None)
  Receive Date: 20061016
  Receipt Date: 20061004
  Transmission Date: 20070319
  Serious: Yes (Other)
  Sender: FDA-Public Use
  Company Number: 2006122150

PATIENT
  Sex: Female

DRUGS (5)
  1. ZOLOFT [Suspect]
  2. XANAX [Suspect]
  3. SEROQUEL [Concomitant]
  4. EPHEDRA (EPHEDRA) [Concomitant]
  5. EFFEXOR - SLOW RELEASE (VANLAFAXINE HYDROCHLORIDE) [Concomitant]

REACTIONS (1)
  - ELECTROCARDIOGRAM QT CORRECTED INTERVAL PROLONGED [None]
